FAERS Safety Report 12790584 (Version 1)
Quarter: 2016Q3

REPORT INFORMATION
  Report Type: Report from Study
  Country: US (occurrence: US)
  Receive Date: 20160929
  Receipt Date: 20160929
  Transmission Date: 20161109
  Serious: Yes (Hospitalization, Other)
  Sender: FDA-Public Use
  Company Number: US-ROCHE-1038196

PATIENT
  Age: 56 Year
  Sex: Female
  Weight: 68.8 kg

DRUGS (9)
  1. TEMSIROLIMUS [Suspect]
     Active Substance: TEMSIROLIMUS
     Route: 042
     Dates: start: 20111214
  2. TEMSIROLIMUS [Suspect]
     Active Substance: TEMSIROLIMUS
     Route: 042
     Dates: start: 20120102
  3. TEMSIROLIMUS [Suspect]
     Active Substance: TEMSIROLIMUS
     Route: 042
     Dates: start: 20111116
  4. BEVACIZUMAB [Suspect]
     Active Substance: BEVACIZUMAB
     Route: 042
     Dates: start: 20111214
  5. TEMSIROLIMUS [Suspect]
     Active Substance: TEMSIROLIMUS
     Indication: MALIGNANT NEOPLASM OF ISLETS OF LANGERHANS
     Dosage: ON DAYS 1, 8, 15, AND 22
     Route: 042
     Dates: start: 20111019
  6. TEMSIROLIMUS [Suspect]
     Active Substance: TEMSIROLIMUS
     Route: 042
     Dates: start: 20120411
  7. BEVACIZUMAB [Suspect]
     Active Substance: BEVACIZUMAB
     Route: 042
     Dates: start: 20111116
  8. BEVACIZUMAB [Suspect]
     Active Substance: BEVACIZUMAB
     Indication: MALIGNANT NEOPLASM OF ISLETS OF LANGERHANS
     Dosage: OVER 30-90 MINUTES ON DAYS 1 AND 15
     Route: 042
     Dates: start: 20111019
  9. TEMSIROLIMUS [Suspect]
     Active Substance: TEMSIROLIMUS
     Route: 042
     Dates: start: 20120129

REACTIONS (8)
  - Hypophosphataemia [Recovered/Resolved]
  - Hyponatraemia [Recovered/Resolved]
  - Fatigue [Unknown]
  - Wound dehiscence [Unknown]
  - Hyperglycaemia [Unknown]
  - Diarrhoea [Unknown]
  - Abdominal infection [Recovered/Resolved]
  - Hypokalaemia [Recovered/Resolved]

NARRATIVE: CASE EVENT DATE: 20111130
